FAERS Safety Report 17568378 (Version 2)
Quarter: 2020Q2

REPORT INFORMATION
  Report Type: Report from Study
  Country: HU (occurrence: HU)
  Receive Date: 20200320
  Receipt Date: 20200618
  Transmission Date: 20200713
  Serious: Yes (Death, Hospitalization, Other)
  Sender: FDA-Public Use
  Company Number: HU-BRISTOL-MYERS SQUIBB COMPANY-BMS-2020-024091

PATIENT
  Age: 38 Year
  Sex: Female
  Weight: 47 kg

DRUGS (6)
  1. NEO FERRO FOLGAMMA [Concomitant]
     Indication: PRODUCT USED FOR UNKNOWN INDICATION
     Dosage: UNK
     Route: 065
  2. PANTOPRAZOL [PANTOPRAZOLE] [Concomitant]
     Active Substance: PANTOPRAZOLE
     Indication: PRODUCT USED FOR UNKNOWN INDICATION
     Route: 065
  3. BLINDED CABOZANTINIB [Suspect]
     Active Substance: CABOZANTINIB
     Indication: RENAL CELL CARCINOMA
     Dosage: 40 MILLIGRAM, QD
     Route: 048
     Dates: start: 20200225
  4. PLACEBO [Suspect]
     Active Substance: UNSPECIFIED INGREDIENT
     Indication: RENAL CELL CARCINOMA
     Dosage: 40 MILLIGRAM, QD
     Route: 048
     Dates: start: 20200225
  5. NIVOLUMAB [Suspect]
     Active Substance: NIVOLUMAB
     Indication: RENAL CELL CARCINOMA
     Dosage: 3 MG/KG, Q3WEEKS, 4 DOSES
     Route: 042
     Dates: start: 20200225
  6. IPILIMUMAB [Suspect]
     Active Substance: IPILIMUMAB
     Indication: RENAL CELL CARCINOMA
     Dosage: 1 MG/KG, Q3WEEKS, 4 DOSES
     Route: 042
     Dates: start: 20200225

REACTIONS (1)
  - Respiratory failure [Fatal]

NARRATIVE: CASE EVENT DATE: 20200309
